FAERS Safety Report 12702882 (Version 2)
Quarter: 2017Q1

REPORT INFORMATION
  Report Type: Spontaneous
  Country: AU (occurrence: AU)
  Receive Date: 20160831
  Receipt Date: 20170307
  Transmission Date: 20170428
  Serious: Yes (Other)
  Sender: FDA-Public Use
  Company Number: AU-AMGEN-AUSSP2016111141

PATIENT
  Age: 73 Year
  Sex: Female
  Weight: 41 kg

DRUGS (83)
  1. LASIX [Concomitant]
     Active Substance: FUROSEMIDE
     Indication: URINE OUTPUT DECREASED
  2. NEXIUM [Concomitant]
     Active Substance: ESOMEPRAZOLE MAGNESIUM
     Indication: HERNIA
  3. CEPHALEX [Concomitant]
     Dosage: 500 MG, TID
  4. MAXALT [Concomitant]
     Active Substance: RIZATRIPTAN BENZOATE
     Dosage: 10 MG, AS NECESSARY
  5. LESCOL [Concomitant]
     Active Substance: FLUVASTATIN SODIUM
     Dosage: 40 MG, UNK
  6. ZINNAT [Concomitant]
     Active Substance: CEFUROXIME AXETIL
     Dosage: 250 MG, BID
  7. LIPITOR [Concomitant]
     Active Substance: ATORVASTATIN CALCIUM
     Dosage: 40 MG, QD
  8. MAXOLON [Concomitant]
     Active Substance: METOCLOPRAMIDE HYDROCHLORIDE
     Indication: VOMITING
  9. LOCACORTEN [Concomitant]
     Dosage: UNK UNK, BID
  10. DIPROSONE [Concomitant]
     Active Substance: BETAMETHASONE DIPROPIONATE
     Dosage: UNK UNK, BID
  11. HYDROXOCOBALAMIN ACETATE. [Concomitant]
     Active Substance: HYDROXOCOBALAMIN ACETATE
     Dosage: UNK UNK, Q3MO
  12. MOVICOL [Concomitant]
     Active Substance: POLYETHYLENE GLYCOL 3350\POTASSIUM CHLORIDE\SODIUM BICARBONATE\SODIUM CHLORIDE
     Dosage: UNK UNK, QD
  13. NEO CYTAMEN [Concomitant]
     Dosage: 1 MG/ML, Q3MO
     Route: 030
  14. MACRODANTIN [Concomitant]
     Active Substance: NITROFURANTOIN
     Dosage: 100 MG, BID
     Route: 048
  15. LAMISIL [Concomitant]
     Active Substance: TERBINAFINE HYDROCHLORIDE
     Dosage: 250 MG, UNK
     Route: 048
  16. VITAMIN B12 [Concomitant]
     Active Substance: CYANOCOBALAMIN
     Indication: MALABSORPTION
     Dosage: Q3MO
  17. NOVASONE [Concomitant]
     Active Substance: MOMETASONE FUROATE
     Dosage: UNK UNK, QD
  18. OSMOLAX [Concomitant]
     Dosage: 1 G, QD
  19. DIFLUCAN [Concomitant]
     Active Substance: FLUCONAZOLE
     Dosage: 50 MG, EVERY 10 DAYS
  20. FOSAMAX PLUS D CAL [Concomitant]
     Dosage: 70MG/5600IU, QWK
  21. PROTOS [Concomitant]
     Dosage: 2 G, UNK
  22. STEMETIL [Concomitant]
     Active Substance: PROCHLORPERAZINE MALEATE
     Indication: DIZZINESS
  23. DICLOCIL [Concomitant]
     Active Substance: DICLOXACILLIN SODIUM
     Dosage: 500 MG, TID
  24. CHLORSIG [Concomitant]
     Active Substance: CHLORAMPHENICOL
     Dosage: UNK UNK, QID
     Route: 047
  25. PARIET [Concomitant]
     Active Substance: RABEPRAZOLE SODIUM
     Dosage: 20 MG, UNK
  26. NEXIUM [Concomitant]
     Active Substance: ESOMEPRAZOLE MAGNESIUM
     Indication: GASTRITIS
     Dosage: 40 MG, BID
  27. DIAZEPAM. [Concomitant]
     Active Substance: DIAZEPAM
     Dosage: 5 MG, UNK
  28. FLAGYL [Concomitant]
     Active Substance: METRONIDAZOLE\METRONIDAZOLE HYDROCHLORIDE
     Dosage: 200 MG, TID
  29. NEO B12 [Concomitant]
     Dosage: 1 MG/ML, Q3MO
  30. RHINOCORT [Concomitant]
     Active Substance: BUDESONIDE
     Dosage: 64 MUG, QD
     Route: 045
  31. VIBRA [Concomitant]
     Dosage: 50 MG, QD
     Route: 048
  32. CELESTONE M [Concomitant]
     Dosage: UNK UNK, BID
  33. TRAMADOL. [Concomitant]
     Active Substance: TRAMADOL
     Dosage: 1-2 TABLET, TID, AS NEEDED
  34. MAXOLON [Concomitant]
     Active Substance: METOCLOPRAMIDE HYDROCHLORIDE
     Indication: NAUSEA
     Dosage: 10 MG, TID, AS NEEDED
  35. ZOCOR [Concomitant]
     Active Substance: SIMVASTATIN
     Dosage: 40 MG, UNK
     Route: 048
  36. SIGMACORT [Concomitant]
     Dosage: UNK UNK, BID
  37. MYLANTA [Concomitant]
     Active Substance: ALUMINUM HYDROXIDE\DIMETHICONE\MAGNESIUM HYDROXIDE
     Dosage: 200 MG, AS NECESSARY
  38. ASPIRIN. [Concomitant]
     Active Substance: ASPIRIN
     Dosage: 100 MG, UNK
  39. PROLIA [Suspect]
     Active Substance: DENOSUMAB
     Indication: OSTEOPOROSIS POSTMENOPAUSAL
     Dosage: Q6MO
     Route: 058
     Dates: start: 20140317
  40. EZETROL [Concomitant]
     Active Substance: EZETIMIBE
     Indication: BLOOD CHOLESTEROL INCREASED
     Dosage: 10 MG, QD
     Dates: start: 201603
  41. KEFLEX [Concomitant]
     Active Substance: CEPHALEXIN
     Dosage: 500 MG, TID
  42. SOFRADEX [Concomitant]
     Active Substance: DEXAMETHASONE\FRAMYCETIN SULFATE\GRAMICIDIN
     Dosage: 0.5MG-5MG-0.05MG/ML, TID
  43. TRIPRIM [Concomitant]
     Active Substance: TRIMETHOPRIM
     Dosage: 300 MG, QD
  44. FML LIQUIFILM [Concomitant]
     Dosage: UNK UNK, TID, AS NEEDED
     Route: 047
  45. PATANOL [Concomitant]
     Active Substance: OLOPATADINE HYDROCHLORIDE
     Dosage: 1 MG/ML, BID
  46. CRESTOR [Concomitant]
     Active Substance: ROSUVASTATIN CALCIUM
     Dosage: 10 MG, QD
  47. OVESTIN [Concomitant]
     Active Substance: ESTRIOL
     Dosage: 1 MG/G, 3 NIGHTS/WEEK
  48. BUSCOPAN [Concomitant]
     Active Substance: BUTYLSCOPOLAMINE BROMIDE
     Indication: RENAL SURGERY
     Dosage: 10 MG (2 TABLETS), TID
  49. NILSTAT [Concomitant]
     Active Substance: NYSTATIN
     Dosage: 500000 UNIT, QID
     Route: 048
  50. KENACOMB [Concomitant]
     Dosage: 1MG-2.5MG-0.35MG, BID
  51. XALATAN [Concomitant]
     Active Substance: LATANOPROST
     Dosage: 50 MUG/ML (1 NOCTE BOTH SIDES), UNK
     Route: 047
  52. VALIUM [Concomitant]
     Active Substance: DIAZEPAM
     Dosage: 5 MG, UNK
  53. ELOCON [Concomitant]
     Active Substance: MOMETASONE FUROATE
     Dosage: UNK UNK, QD
  54. NOROXIN [Concomitant]
     Active Substance: NORFLOXACIN
     Dosage: 400 MG, BID
  55. ELIDEL [Concomitant]
     Active Substance: PIMECROLIMUS
     Dosage: UNK UNK, BID
  56. IMIGRAN [Concomitant]
     Active Substance: SUMATRIPTAN SUCCINATE
     Dosage: UNK UNK, AS NECESSARY
     Route: 045
  57. LASIX [Concomitant]
     Active Substance: FUROSEMIDE
     Indication: RENAL SURGERY
     Dosage: 40 MG (1 1/2 TABLET MANE), UNK
  58. LYRICA [Concomitant]
     Active Substance: PREGABALIN
     Dosage: 25 MG, BID
  59. BACTROBAN [Concomitant]
     Active Substance: MUPIROCIN\MUPIROCIN CALCIUM
     Dosage: 20 UNK, BID
     Route: 045
  60. ALDACTONE [Concomitant]
     Active Substance: SPIRONOLACTONE
     Dosage: 25 MG, UNK
  61. NEMDYN [Concomitant]
     Dosage: 3.5MG-400IU, BID
  62. CEPHALEXIN. [Concomitant]
     Active Substance: CEPHALEXIN
     Dosage: 500 MG, QID
  63. CHLORVESCENT [Concomitant]
     Active Substance: POTASSIUM CHLORIDE
     Indication: TRANSIENT ISCHAEMIC ATTACK
     Dosage: 1 DF, BID
  64. TAZAC [Concomitant]
     Indication: GASTRITIS
     Dosage: 150 MG, BID
  65. AMOXICILLIN. [Concomitant]
     Active Substance: AMOXICILLIN
     Dosage: 500 MG, TID
  66. TRIMETHOPRIM. [Concomitant]
     Active Substance: TRIMETHOPRIM
     Dosage: 300 MG, QD
  67. NASALATE [Concomitant]
     Dosage: UNK UNK, TID
     Route: 045
  68. OSTELIN [Concomitant]
     Active Substance: ERGOCALCIFEROL
     Dosage: UNK
  69. STEMETIL [Concomitant]
     Active Substance: PROCHLORPERAZINE MALEATE
     Indication: NAUSEA
     Dosage: 5 MG, TID, AS NEEDED
  70. ZOVIRAX [Concomitant]
     Active Substance: ACYCLOVIR
     Dosage: UNK
     Route: 047
  71. DALACIN V [Concomitant]
  72. BUSCOPAN [Concomitant]
     Active Substance: BUTYLSCOPOLAMINE BROMIDE
     Indication: URINE OUTPUT DECREASED
  73. PLAVIX [Concomitant]
     Active Substance: CLOPIDOGREL BISULFATE
     Dosage: 75 MG, UNK
  74. TAZAC [Concomitant]
     Indication: HERNIA
  75. PEPSIN [Concomitant]
     Active Substance: PEPSIN
     Dosage: 2.5 ML, TID
  76. LIPEX [Concomitant]
     Active Substance: SIMVASTATIN
     Dosage: 40 MG, UNK
  77. CIPROXIN [Concomitant]
     Active Substance: CIPROFLOXACIN
     Dosage: 2MG-10MG/ML, BID
  78. SOLARAZE [Concomitant]
     Active Substance: DICLOFENAC SODIUM
     Dosage: UNK UNK, BID
  79. DIGESIC [Concomitant]
     Active Substance: ACETAMINOPHEN\PROPOXYPHENE HYDROCHLORIDE
     Dosage: 32.5MG/325MG, QID, AS NEEDED
  80. PANAMAX [Concomitant]
     Active Substance: ACETAMINOPHEN
     Dosage: 500 MG, TID
  81. CAFERGOT [Concomitant]
     Active Substance: CAFFEINE\ERGOTAMINE TARTRATE
     Dosage: 1MG/100MG
  82. ADVANTAN [Concomitant]
     Active Substance: CORTICOSTEROID NOS
     Dosage: UNK UNK, QD
  83. QUINATE [Concomitant]
     Dosage: 300 MG, AS NECESSARY

REACTIONS (12)
  - Renal surgery [Unknown]
  - Malaise [Unknown]
  - Weight abnormal [Unknown]
  - Scoliosis [Unknown]
  - Blood cholesterol increased [Unknown]
  - Fall [Unknown]
  - Spinal column stenosis [Unknown]
  - Low density lipoprotein increased [Unknown]
  - Limb injury [Unknown]
  - Hernia [Unknown]
  - Nausea [Unknown]
  - Urine flow decreased [Unknown]

NARRATIVE: CASE EVENT DATE: 201502
